FAERS Safety Report 9179103 (Version 2)
Quarter: 2013Q2

REPORT INFORMATION
  Report Type: Spontaneous
  Country: JP (occurrence: JP)
  Receive Date: 20130321
  Receipt Date: 20130409
  Transmission Date: 20140414
  Serious: Yes (Hospitalization)
  Sender: FDA-Public Use
  Company Number: JP-ROCHE-1204775

PATIENT
  Age: 4 Decade
  Sex: Female

DRUGS (3)
  1. TAMIFLU [Suspect]
     Indication: INFLUENZA
     Route: 048
     Dates: start: 20130226, end: 20130302
  2. CALONAL [Concomitant]
     Route: 065
     Dates: start: 20130226, end: 20130302
  3. HUSCODE [Concomitant]
     Route: 065
     Dates: start: 20130226, end: 20130302

REACTIONS (3)
  - Amnesia [Recovered/Resolved]
  - Anger [Recovered/Resolved]
  - Aggression [Recovered/Resolved]
